FAERS Safety Report 4945133-6 (Version None)
Quarter: 2006Q1

REPORT INFORMATION
  Report Type: 
  Country: None (occurrence: None)
  Receive Date: 20060117
  Receipt Date: 20041206
  Transmission Date: 20060701
  Serious: Yes (Other)
  Sender: FDA-Public Use
  Company Number: A03200404117

PATIENT
  Age: 86 Year
  Sex: Female
  Weight: 47.6277 kg

DRUGS (4)
  1. PLAVIX [Suspect]
     Indication: ANTICOAGULANT THERAPY
     Dosage: 75 MG QD - ORAL
     Route: 048
     Dates: start: 20041001
  2. FLUVASTATIN SODIUM [Concomitant]
  3. ALENDRONATE SODIUM [Concomitant]
  4. LEVOTHYROXINE SODIUM [Concomitant]

REACTIONS (3)
  - ANAEMIA [None]
  - FATIGUE [None]
  - GASTROINTESTINAL HAEMORRHAGE [None]
